FAERS Safety Report 16270433 (Version 5)
Quarter: 2019Q3

REPORT INFORMATION
  Report Type: Spontaneous
  Country: US (occurrence: US)
  Receive Date: 20190503
  Receipt Date: 20190806
  Transmission Date: 20191004
  Serious: Yes (Hospitalization)
  Sender: FDA-Public Use
  Company Number: US-PFIZER INC-2019188069

PATIENT
  Age: 58 Year
  Sex: Male

DRUGS (13)
  1. OMEPRAZOLE. [Concomitant]
     Active Substance: OMEPRAZOLE
     Dosage: UNK
  2. VALSARTAN. [Concomitant]
     Active Substance: VALSARTAN
     Dosage: UNK
  3. MORPHINE SULFATE. [Concomitant]
     Active Substance: MORPHINE SULFATE
     Indication: NECK PAIN
     Dosage: 60 MG, 2X/DAY (EXTENDED RELEASE)
  4. GABAPENTIN. [Suspect]
     Active Substance: GABAPENTIN
     Indication: BACK PAIN
     Dosage: 300 MG, UNK (NASOGASTRIC TUBE)
  5. NIACIN. [Concomitant]
     Active Substance: NIACIN
     Dosage: UNK
  6. OXYCODONE AND ACETAMINOPHEN [Concomitant]
     Active Substance: ACETAMINOPHEN\OXYCODONE HYDROCHLORIDE
     Indication: BACK PAIN
     Dosage: 10/325 MG FOUR TIMES A DAY AS NEEDED
  7. METFORMIN [Concomitant]
     Active Substance: METFORMIN HYDROCHLORIDE
     Dosage: UNK
  8. LEVOTHYROXINE. [Concomitant]
     Active Substance: LEVOTHYROXINE
     Dosage: UNK
  9. INSULIN [Concomitant]
     Active Substance: INSULIN NOS
     Dosage: UNK (INSULIN WITH MEALS)
  10. MORPHINE SULFATE. [Concomitant]
     Active Substance: MORPHINE SULFATE
     Indication: BACK PAIN
     Dosage: 60 MG, 2X/DAY (EXTRA DOSE, EXTENDED RELEASE, 3-4 HOURS BEFORE COMING TO THE HOSPITAL)
  11. GABAPENTIN. [Suspect]
     Active Substance: GABAPENTIN
     Indication: NECK PAIN
     Dosage: 1000 MG, 3X/DAY
  12. GABAPENTIN. [Suspect]
     Active Substance: GABAPENTIN
     Dosage: 600 MG, 3X/DAY (VIA PEG TUBE)
  13. OXYCODONE AND ACETAMINOPHEN [Concomitant]
     Active Substance: ACETAMINOPHEN\OXYCODONE HYDROCHLORIDE
     Indication: NECK PAIN

REACTIONS (3)
  - Drug withdrawal syndrome [Recovering/Resolving]
  - Product use in unapproved indication [Unknown]
  - Off label use [Unknown]
